FAERS Safety Report 12641275 (Version 1)
Quarter: 2016Q3

REPORT INFORMATION
  Report Type: Spontaneous
  Country: US (occurrence: US)
  Receive Date: 20160810
  Receipt Date: 20160810
  Transmission Date: 20161109
  Serious: No
  Sender: FDA-Public Use
  Company Number: US-PFIZER INC-2016369227

PATIENT
  Age: 57 Year
  Sex: Female
  Weight: 87.35 kg

DRUGS (2)
  1. MYSOLINE [Concomitant]
     Active Substance: PRIMIDONE
     Indication: PARTIAL SEIZURES
     Dosage: 250 MG, 2X/DAY
     Route: 048
  2. DILANTIN [Suspect]
     Active Substance: PHENYTOIN
     Indication: PARTIAL SEIZURES
     Dosage: 200 MG, 1X/DAY
     Route: 048

REACTIONS (2)
  - Aura [Unknown]
  - Drug dose omission [Unknown]
